FAERS Safety Report 10037240 (Version 1)
Quarter: 2014Q1

REPORT INFORMATION
  Report Type: Spontaneous
  Country: US (occurrence: None)
  Receive Date: 20140325
  Receipt Date: 20140325
  Transmission Date: 20141002
  Serious: Yes (Life-Threatening, Hospitalization, Disabling)
  Sender: FDA-Public Use
  Company Number: None

PATIENT
  Age: 37 Year
  Sex: Female
  Weight: 75.3 kg

DRUGS (22)
  1. ORTHO-CEPT [Suspect]
     Indication: ENDOMETRIOSIS
     Dosage: 1 PILL
     Route: 048
     Dates: start: 20091102, end: 20120413
  2. XOLAIR [Concomitant]
  3. IMMUNOTHERAPY/ALLERGY SHOTS [Concomitant]
  4. ACCOLATE [Concomitant]
  5. ADVAIR HFA [Concomitant]
  6. XOPENEX HFA [Concomitant]
  7. EPIPEN [Concomitant]
  8. CLARITIN [Concomitant]
  9. KETOTIFEN [Concomitant]
  10. FLONASE [Concomitant]
  11. IPRATROPIUM BROMIDE [Concomitant]
  12. VERAPAMIL HCL [Concomitant]
  13. DITROPAN [Concomitant]
  14. ELAVIL [Concomitant]
  15. CYCLOBENAZAPRINE HCL [Concomitant]
  16. STRATTERA [Concomitant]
  17. ROPINROLE HCL [Concomitant]
  18. PRAVASTATIN [Concomitant]
  19. PROZAC [Concomitant]
  20. COUMADIN [Concomitant]
  21. BACITRACIN OINTMENT [Concomitant]
  22. NEBULIZER [Concomitant]

REACTIONS (5)
  - Deep vein thrombosis [None]
  - Pulmonary embolism [None]
  - Sinusitis [None]
  - Bronchitis [None]
  - Pneumonia [None]
